FAERS Safety Report 5285207-6 (Version None)
Quarter: 2007Q1

REPORT INFORMATION
  Report Type: 
  Country: None (occurrence: None)
  Receive Date: 20061229
  Receipt Date: 20060825
  Transmission Date: 20070707
  Serious: Yes (Other)
  Sender: FDA-Public Use
  Company Number: 2006UW16904

PATIENT
  Age: 67 Year
  Sex: Female
  Weight: 87.996 kg

DRUGS (7)
  1. CRESTOR [Suspect]
     Indication: HYPERCHOLESTEROLAEMIA
     Dosage: 5 MG PO
     Route: 048
     Dates: start: 20060301
  2. ALPRAZOLAM [Concomitant]
  3. PRILOSEC [Concomitant]
  4. ATENOLOL [Concomitant]
  5. OXYBUTYN [Concomitant]
  6. ASPIRIN [Concomitant]
  7. VITAMIN CAP [Concomitant]

REACTIONS (5)
  - ABDOMINAL PAIN [None]
  - BURNING SENSATION [None]
  - CHEST PAIN [None]
  - GASTRIC DISORDER [None]
  - MUSCLE SPASMS [None]
